FAERS Safety Report 20732215 (Version 2)
Quarter: 2024Q1

REPORT INFORMATION
  Report Type: Spontaneous
  Country: US (occurrence: US)
  Receive Date: 20220420
  Receipt Date: 20240214
  Transmission Date: 20240410
  Serious: Yes (Other)
  Sender: FDA-Public Use
  Company Number: US-BRISTOL-MYERS SQUIBB COMPANY-2022-022604

PATIENT
  Age: 70 Year
  Sex: Male
  Weight: 85 kg

DRUGS (1)
  1. POMALYST [Suspect]
     Active Substance: POMALIDOMIDE
     Indication: Plasma cell myeloma
     Dosage: 3W, 1 W OFF
     Route: 048

REACTIONS (1)
  - Plasma cell myeloma recurrent [Unknown]
